FAERS Safety Report 8829575 (Version 2)
Quarter: 2012Q4

REPORT INFORMATION
  Report Type: Report from Study
  Country: US (occurrence: US)
  Receive Date: 20121008
  Receipt Date: 20121113
  Transmission Date: 20130627
  Serious: Yes (Other)
  Sender: FDA-Public Use
  Company Number: US-ABBOTT-12P-163-0991229-00

PATIENT
  Age: 30 Year
  Sex: Female
  Weight: 61.29 kg

DRUGS (3)
  1. LUPRON DEPOT [Suspect]
     Indication: ENDOMETRIOSIS
     Dates: start: 20120918
  2. ULTRAM [Suspect]
     Indication: PAIN
     Dosage: One pill in am, two pills in the evening
     Dates: start: 20121002
  3. ULTRAM [Suspect]
     Indication: INFLAMMATION

REACTIONS (8)
  - Endometriosis [Recovering/Resolving]
  - Ovarian cyst [Recovering/Resolving]
  - Abdominal pain [Unknown]
  - Pain in extremity [Unknown]
  - Hypoaesthesia [Unknown]
  - Drug ineffective [Unknown]
  - Dizziness [Unknown]
  - Vertigo [Unknown]
